FAERS Safety Report 16582907 (Version 3)
Quarter: 2019Q3

REPORT INFORMATION
  Report Type: Spontaneous
  Country: FR (occurrence: FR)
  Receive Date: 20190717
  Receipt Date: 20190912
  Transmission Date: 20191004
  Serious: Yes (Other)
  Sender: FDA-Public Use
  Company Number: FR-BEH-2019104249

PATIENT
  Age: 44 Year
  Sex: Female
  Weight: 91 kg

DRUGS (42)
  1. BERINERT [Suspect]
     Active Substance: HUMAN C1-ESTERASE INHIBITOR
     Indication: HEREDITARY ANGIOEDEMA
     Dosage: 20 INTERNATIONAL UNIT/KILOGRAM, TOT
     Route: 042
     Dates: start: 20190603, end: 20190603
  2. BERINERT [Suspect]
     Active Substance: HUMAN C1-ESTERASE INHIBITOR
     Indication: PROPHYLAXIS
  3. DEXAMETHASONE. [Concomitant]
     Active Substance: DEXAMETHASONE
     Indication: DYSPNOEA
     Route: 065
  4. DEXAMETHASONE. [Concomitant]
     Active Substance: DEXAMETHASONE
     Indication: ASTHENIA
  5. LACTATED RINGERS SOLUTION [Concomitant]
     Active Substance: CALCIUM CHLORIDE\POTASSIUM CHLORIDE\SODIUM CHLORIDE\SODIUM LACTATE
     Indication: ASTHENIA
     Route: 065
  6. AUGMENTIN [Concomitant]
     Active Substance: AMOXICILLIN\CLAVULANATE POTASSIUM
     Indication: ASTHENIA
  7. FIRAZYR [Concomitant]
     Active Substance: ICATIBANT ACETATE
     Indication: HEREDITARY ANGIOEDEMA
  8. KETAMINE [Suspect]
     Active Substance: KETAMINE
     Indication: ANAESTHESIA
     Route: 042
     Dates: start: 20190603, end: 20190603
  9. PARACETAMOL [Suspect]
     Active Substance: ACETAMINOPHEN
     Indication: ANAESTHESIA
     Route: 042
     Dates: start: 20190603, end: 20190603
  10. KETOPROFENE [KETOPROFEN] [Suspect]
     Active Substance: KETOPROFEN
     Indication: ANAESTHESIA
     Route: 042
     Dates: start: 20190603, end: 20190603
  11. KETAMINE [Concomitant]
     Active Substance: KETAMINE
     Indication: ASTHENIA
  12. AUGMENTIN [Suspect]
     Active Substance: AMOXICILLIN\CLAVULANATE POTASSIUM
     Indication: ANAESTHESIA
     Route: 042
     Dates: start: 20190603, end: 20190603
  13. REMIFENTANIL [Suspect]
     Active Substance: REMIFENTANIL
     Indication: ANAESTHESIA
     Route: 042
     Dates: start: 20190603, end: 20190603
  14. PROPOFOL. [Concomitant]
     Active Substance: PROPOFOL
     Indication: MUSCULAR WEAKNESS
  15. REMIFENTANIL [Concomitant]
     Active Substance: REMIFENTANIL
     Indication: DYSPNOEA
  16. NEFOPAM [Concomitant]
     Active Substance: NEFOPAM
     Indication: DYSPNOEA
     Route: 065
  17. XYLOCAINE [Concomitant]
     Active Substance: LIDOCAINE HYDROCHLORIDE
     Indication: MUSCULAR WEAKNESS
  18. LACTATED RINGERS SOLUTION [Concomitant]
     Active Substance: CALCIUM CHLORIDE\POTASSIUM CHLORIDE\SODIUM CHLORIDE\SODIUM LACTATE
     Indication: MUSCULAR WEAKNESS
  19. NEFOPAMUM [Suspect]
     Active Substance: NEFOPAM
     Indication: ANAESTHESIA
     Route: 042
     Dates: start: 20190603, end: 20190603
  20. PROPOFOL. [Suspect]
     Active Substance: PROPOFOL
     Indication: ANAESTHESIA
     Route: 042
     Dates: start: 20190603, end: 20190603
  21. XYLOCAINE WITH EPINEPHRINE [Suspect]
     Active Substance: EPINEPHRINE BITARTRATE\LIDOCAINE HYDROCHLORIDE
     Indication: ANAESTHESIA
     Route: 042
     Dates: start: 20190603, end: 20190603
  22. DEXAMETHASONE. [Suspect]
     Active Substance: DEXAMETHASONE
     Indication: ANAESTHESIA
     Route: 042
     Dates: start: 20190603, end: 20190603
  23. DEXAMETHASONE. [Concomitant]
     Active Substance: DEXAMETHASONE
     Indication: MUSCULAR WEAKNESS
  24. PROPOFOL. [Concomitant]
     Active Substance: PROPOFOL
     Indication: DYSPNOEA
  25. PROPOFOL. [Concomitant]
     Active Substance: PROPOFOL
     Indication: ASTHENIA
  26. REMIFENTANIL [Concomitant]
     Active Substance: REMIFENTANIL
     Indication: MUSCULAR WEAKNESS
  27. NEFOPAM [Concomitant]
     Active Substance: NEFOPAM
     Indication: ASTHENIA
  28. XYLOCAINE [Concomitant]
     Active Substance: LIDOCAINE HYDROCHLORIDE
     Indication: DYSPNOEA
     Route: 065
  29. KETAMINE [Concomitant]
     Active Substance: KETAMINE
     Indication: DYSPNOEA
  30. LANADELUMAB [Suspect]
     Active Substance: LANADELUMAB
     Indication: HEREDITARY ANGIOEDEMA
     Dosage: 600 MILLIGRAM, QMT, 2X A MONTH (TWICE MONTHLY), CUMULATIVE DOSE TO FIRST REACTION (NUMBER): 2669.291
     Route: 058
     Dates: start: 20190211, end: 20190617
  31. AUGMENTIN [Concomitant]
     Active Substance: AMOXICILLIN\CLAVULANATE POTASSIUM
     Indication: DYSPNOEA
     Route: 065
  32. AUGMENTIN [Concomitant]
     Active Substance: AMOXICILLIN\CLAVULANATE POTASSIUM
     Indication: MUSCULAR WEAKNESS
  33. NEFOPAM [Concomitant]
     Active Substance: NEFOPAM
     Indication: MUSCULAR WEAKNESS
  34. PARACETAMOL [Concomitant]
     Active Substance: ACETAMINOPHEN
     Indication: DYSPNOEA
     Route: 065
  35. PARACETAMOL [Concomitant]
     Active Substance: ACETAMINOPHEN
     Indication: MUSCULAR WEAKNESS
  36. BERINERT [Suspect]
     Active Substance: HUMAN C1-ESTERASE INHIBITOR
     Indication: HEREDITARY ANGIOEDEMA
     Dosage: 20 INTERNATIONAL UNIT/KILOGRAM, TOT
     Route: 042
     Dates: start: 20190603, end: 20190603
  37. BERINERT [Suspect]
     Active Substance: HUMAN C1-ESTERASE INHIBITOR
     Indication: PROPHYLAXIS
  38. REMIFENTANIL [Concomitant]
     Active Substance: REMIFENTANIL
     Indication: ASTHENIA
     Route: 065
  39. XYLOCAINE [Concomitant]
     Active Substance: LIDOCAINE HYDROCHLORIDE
     Indication: ASTHENIA
  40. KETAMINE [Concomitant]
     Active Substance: KETAMINE
     Indication: MUSCULAR WEAKNESS
     Route: 065
  41. PARACETAMOL [Concomitant]
     Active Substance: ACETAMINOPHEN
     Indication: ASTHENIA
  42. LACTATED RINGERS SOLUTION [Concomitant]
     Active Substance: CALCIUM CHLORIDE\POTASSIUM CHLORIDE\SODIUM CHLORIDE\SODIUM LACTATE
     Indication: DYSPNOEA

REACTIONS (5)
  - Dyspnoea exertional [Not Recovered/Not Resolved]
  - Muscular weakness [Unknown]
  - Asthenia [Not Recovered/Not Resolved]
  - Muscle fatigue [Not Recovered/Not Resolved]
  - Dyspnoea [Unknown]

NARRATIVE: CASE EVENT DATE: 20190603
